FAERS Safety Report 7804383-1 (Version None)
Quarter: 2011Q4

REPORT INFORMATION
  Report Type: 
  Country: None (occurrence: None)
  Receive Date: 20111010
  Receipt Date: 20110926
  Transmission Date: 20120403
  Serious: Yes (Hospitalization, Other)
  Sender: FDA-Public Use
  Company Number: US-ELI_LILLY_AND_COMPANY-US201109007866

PATIENT
  Age: 30 Year
  Sex: Male

DRUGS (21)
  1. LOVENOX [Concomitant]
     Dosage: UNK, UNKNOWN
     Route: 065
  2. ZOFRAN [Concomitant]
     Dosage: UNK, UNKNOWN
     Route: 065
  3. PROTONIX [Concomitant]
     Dosage: UNK, UNKNOWN
     Route: 065
  4. ALBUTEROL [Concomitant]
     Dosage: UNK, UNKNOWN
     Route: 065
  5. WARFARIN SODIUM [Concomitant]
     Dosage: UNK, UNKNOWN
     Route: 065
  6. CALCITRAL [Concomitant]
     Dosage: UNK, UNKNOWN
     Route: 065
  7. DIAZEPAM [Concomitant]
     Dosage: UNK, UNKNOWN
     Route: 065
  8. FOLIC ACID [Concomitant]
     Dosage: UNK, UNKNOWN
     Route: 065
  9. PREDNISONE [Concomitant]
     Dosage: UNK, UNKNOWN
     Route: 065
  10. PENTAMIDINE [Concomitant]
     Dosage: UNK, UNKNOWN
     Route: 065
  11. CIMZIA [Concomitant]
     Dosage: UNK, UNKNOWN
     Route: 065
  12. MULTI-VITAMIN [Concomitant]
     Dosage: UNK, UNKNOWN
     Route: 065
  13. VITAMIN B-12 [Concomitant]
     Dosage: UNK, UNKNOWN
     Route: 065
  14. VALACICLOVIR [Concomitant]
     Dosage: UNK, UNKNOWN
     Route: 065
  15. AMBIEN [Concomitant]
     Dosage: UNK, UNKNOWN
     Route: 065
  16. FORTEO [Suspect]
     Indication: OSTEOPOROSIS
     Dosage: 20 UG, QD
     Route: 065
     Dates: start: 20110720
  17. OXYCODONE HCL [Concomitant]
     Dosage: UNK, UNKNOWN
     Route: 065
  18. BENADRYL [Concomitant]
     Dosage: UNK, PRN
     Route: 065
  19. SIMETHICONE [Concomitant]
     Dosage: UNK, UNKNOWN
     Route: 065
  20. MYCOPHENOLATE MOFETIL [Concomitant]
     Dosage: UNK, UNKNOWN
     Route: 065
  21. CALCIUM CARBONATE [Concomitant]
     Dosage: UNK, UNKNOWN
     Route: 065

REACTIONS (3)
  - SURGERY [None]
  - LIVER TRANSPLANT [None]
  - INFECTION [None]
